FAERS Safety Report 7776691-4 (Version None)
Quarter: 2011Q3

REPORT INFORMATION
  Report Type: 
  Country: None (occurrence: None)
  Receive Date: 20110926
  Receipt Date: 20110131
  Transmission Date: 20111222
  Serious: No
  Sender: FDA-Public Use
  Company Number: US-BAYER-2011-011797

PATIENT
  Age: 72 Year
  Sex: Male
  Weight: 106.58 kg

DRUGS (1)
  1. BETASERON [Suspect]
     Dosage: 0.25 MG, QOD
     Route: 058

REACTIONS (3)
  - INJECTION SITE INFLAMMATION [None]
  - INJECTION SITE DISCOMFORT [None]
  - INJECTION SITE PAIN [None]
